FAERS Safety Report 8210702-7 (Version None)
Quarter: 2012Q1

REPORT INFORMATION
  Report Type: 
  Country: None (occurrence: None)
  Receive Date: 20120315
  Receipt Date: 20120306
  Transmission Date: 20120608
  Serious: Yes (Other)
  Sender: FDA-Public Use
  Company Number: US-BRISTOL-MYERS SQUIBB COMPANY-16436057

PATIENT
  Age: 16 Year
  Sex: Female
  Weight: 57 kg

DRUGS (1)
  1. YERVOY [Suspect]
     Indication: BRAIN NEOPLASM
     Dosage: TOTAL INF 3
     Dates: start: 20110701

REACTIONS (1)
  - CEREBROVASCULAR ACCIDENT [None]
